FAERS Safety Report 8967805 (Version 1)
Quarter: 2012Q4

REPORT INFORMATION
  Report Type: 
  Country: MX (occurrence: MX)
  Receive Date: 20121218
  Receipt Date: 20121218
  Transmission Date: 20130627
  Serious: Yes (Other)
  Sender: FDA-Public Use
  Company Number: PHHY2012MX115537

PATIENT
  Sex: Female

DRUGS (1)
  1. EXFORGE HCT [Suspect]
     Indication: HYPERTENSION
     Dosage: 2 DF, (160 mg val, 5 mg amlo and 12.5 mg HCTZ), daily
     Route: 048

REACTIONS (1)
  - Cardiac disorder [Not Recovered/Not Resolved]
